FAERS Safety Report 7051215-8 (Version None)
Quarter: 2010Q4

REPORT INFORMATION
  Report Type: 
  Country: None (occurrence: None)
  Receive Date: 20101019
  Receipt Date: 20101007
  Transmission Date: 20110411
  Serious: Yes (Hospitalization, Disabling, Other)
  Sender: FDA-Public Use
  Company Number: BR-BAYER-201019750LA

PATIENT
  Age: 50 Year
  Sex: Female

DRUGS (2)
  1. BETAFERON [Suspect]
     Indication: PROGRESSIVE MULTIPLE SCLEROSIS
     Dosage: BETAJECT
     Route: 058
     Dates: start: 20040101, end: 20091201
  2. CHEMOTHERAPY [Concomitant]
     Indication: MULTIPLE SCLEROSIS
     Dosage: ABOUT 1 SESSION ONCE PER MONTH
     Route: 048
     Dates: start: 20100101, end: 20100801

REACTIONS (10)
  - ASTHENIA [None]
  - COORDINATION ABNORMAL [None]
  - FALL [None]
  - FIBULA FRACTURE [None]
  - GAIT DISTURBANCE [None]
  - HALLUCINATION [None]
  - HAND DEFORMITY [None]
  - MULTIPLE SCLEROSIS RELAPSE [None]
  - MUSCLE SPASTICITY [None]
  - TIBIA FRACTURE [None]
